FAERS Safety Report 25180014 (Version 3)
Quarter: 2025Q2

REPORT INFORMATION
  Report Type: Spontaneous
  Country: AR (occurrence: AR)
  Receive Date: 20250409
  Receipt Date: 20250516
  Transmission Date: 20250717
  Serious: Yes (Hospitalization, Other)
  Sender: PFIZER
  Company Number: AR-PFIZER INC-202500076025

PATIENT
  Age: 57 Year
  Sex: Female

DRUGS (3)
  1. TALZENNA [Suspect]
     Active Substance: TALAZOPARIB TOSYLATE
     Indication: Breast cancer metastatic
     Dosage: 1 MG, DAILY
     Dates: start: 20241101, end: 20250325
  2. TALZENNA [Suspect]
     Active Substance: TALAZOPARIB TOSYLATE
  3. TALZENNA [Suspect]
     Active Substance: TALAZOPARIB TOSYLATE
     Dosage: 0.75 MG, DAILY

REACTIONS (4)
  - Decreased immune responsiveness [Unknown]
  - Platelet count decreased [Unknown]
  - Malaise [Unknown]
  - Red blood cell count decreased [Unknown]
